FAERS Safety Report 5272202-6 (Version None)
Quarter: 2007Q1

REPORT INFORMATION
  Report Type: 
  Country: None (occurrence: None)
  Receive Date: 20070322
  Receipt Date: 20070309
  Transmission Date: 20070707
  Serious: Yes (Hospitalization)
  Sender: FDA-Public Use
  Company Number: US-NOVOPROD-261549

PATIENT
  Age: 3 Year
  Sex: Female
  Weight: 27 kg

DRUGS (5)
  1. NOVOLOG [Suspect]
     Indication: DIABETES MELLITUS INSULIN-DEPENDENT
     Dosage: UNK IU, QD
     Route: 058
     Dates: start: 20070307
  2. NOVOLIN N [Suspect]
     Indication: DIABETES MELLITUS INSULIN-DEPENDENT
     Dosage: UNKNOWN
     Route: 058
     Dates: start: 20070307
  3. HUMALOG                            /00030501/ [Suspect]
     Indication: DIABETES MELLITUS INSULIN-DEPENDENT
     Dosage: UNKNOWN
     Route: 058
     Dates: start: 20070306, end: 20070307
  4. HUMULIN N                          /00030504/ [Suspect]
     Indication: DIABETES MELLITUS INSULIN-DEPENDENT
     Dosage: UNKNOWN
     Route: 058
     Dates: start: 20070306, end: 20070307
  5. NYSTATIN [Concomitant]
     Indication: FUNGAL INFECTION
     Dosage: UNKNOWN
     Route: 061
     Dates: start: 20070306

REACTIONS (4)
  - BLOOD GLUCOSE INCREASED [None]
  - FLUSHING [None]
  - SWELLING FACE [None]
  - URTICARIA [None]
